FAERS Safety Report 18855828 (Version 1)
Quarter: 2021Q1

REPORT INFORMATION
  Report Type: Spontaneous
  Country: US (occurrence: US)
  Receive Date: 20210205
  Receipt Date: 20210205
  Transmission Date: 20210420
  Serious: No
  Sender: FDA-Public Use
  Company Number: US-009507513-2102USA002042

PATIENT
  Sex: Female

DRUGS (2)
  1. KEYTRUDA [Suspect]
     Active Substance: PEMBROLIZUMAB
     Indication: ENDOMETRIAL CANCER
     Dosage: 200 MILLIGRAM, Q3W
     Route: 042
  2. LENVATINIB MESYLATE [Suspect]
     Active Substance: LENVATINIB MESYLATE
     Indication: ENDOMETRIAL CANCER
     Dosage: 10 MILLIGRAM, QD
     Route: 048

REACTIONS (7)
  - Hypertension [Not Recovered/Not Resolved]
  - Hypersomnia [Recovered/Resolved]
  - Mucosal inflammation [Not Recovered/Not Resolved]
  - Gingival swelling [Recovered/Resolved]
  - Facial pain [Recovered/Resolved]
  - Fatigue [Recovered/Resolved]
  - Oral pain [Recovered/Resolved]
